FAERS Safety Report 5236468-0 (Version None)
Quarter: 2007Q1

REPORT INFORMATION
  Report Type: 
  Country: None (occurrence: None)
  Receive Date: 20061208
  Receipt Date: 20060608
  Transmission Date: 20070707
  Serious: Yes (Other)
  Sender: FDA-Public Use
  Company Number: 2006UW12342

PATIENT
  Age: 77 Year
  Sex: Female
  Weight: 90.718 kg

DRUGS (7)
  1. CRESTOR [Suspect]
     Indication: HYPERCHOLESTEROLAEMIA
     Dosage: 5 MG QD PO
     Route: 048
     Dates: start: 20060605
  2. HORMONE [Concomitant]
  3. THYROID TAB [Concomitant]
  4. TYLENOL [Concomitant]
  5. VITAMINS [Concomitant]
  6. UNSPECIFIED BLADDER MEDICATION [Concomitant]
  7. SLEEPING PILL UNSPECIFIED [Concomitant]

REACTIONS (1)
  - NOCTURIA [None]
